FAERS Safety Report 22014900 (Version 1)
Quarter: 2023Q1

REPORT INFORMATION
  Report Type: Report from Study
  Country: US (occurrence: US)
  Receive Date: 20230221
  Receipt Date: 20230221
  Transmission Date: 20230418
  Serious: Yes (Hospitalization, Other)
  Sender: FDA-Public Use
  Company Number: US-SA-SAC20230217001027

PATIENT
  Age: 36 Year
  Sex: Female

DRUGS (2)
  1. ALEMTUZUMAB [Suspect]
     Active Substance: ALEMTUZUMAB
     Indication: Multiple sclerosis
     Dosage: 12MG PER DAY FOR FIVE DAYS
     Route: 041
     Dates: start: 20171204
  2. ALEMTUZUMAB [Suspect]
     Active Substance: ALEMTUZUMAB
     Dosage: 12MG PER DAY FOR THREE DAYS
     Route: 041
     Dates: end: 20190417

REACTIONS (1)
  - Immune thrombocytopenia [Not Recovered/Not Resolved]
